FAERS Safety Report 5224840-4 (Version None)
Quarter: 2007Q1

REPORT INFORMATION
  Report Type: 
  Country: None (occurrence: None)
  Receive Date: 20070131
  Receipt Date: 20070126
  Transmission Date: 20070707
  Serious: Yes (Other)
  Sender: FDA-Public Use
  Company Number: US-BAYER-200710266BCC

PATIENT
  Age: 51 Year
  Sex: Female

DRUGS (2)
  1. MIDOL [Suspect]
     Indication: DRUG USE FOR UNKNOWN INDICATION
  2. PAMPRIN TAB [Suspect]
     Indication: DRUG USE FOR UNKNOWN INDICATION

REACTIONS (2)
  - HYPOAESTHESIA [None]
  - PARALYSIS [None]
